FAERS Safety Report 7346746-7 (Version None)
Quarter: 2011Q1

REPORT INFORMATION
  Report Type: 
  Country: None (occurrence: None)
  Receive Date: 20110302
  Receipt Date: 20081229
  Transmission Date: 20110831
  Serious: Yes (Other)
  Sender: FDA-Public Use
  Company Number: UK-2008-00472

PATIENT
  Sex: Male

DRUGS (5)
  1. SPIRONOLACTONE [Concomitant]
  2. IRON (FERROUS SULPHATE) [Concomitant]
  3. WARFARIN [Concomitant]
  4. BISOPROLOL [Concomitant]
  5. SIMVASTATIN [Suspect]
     Indication: HYPERCHOLESTEROLAEMIA
     Dosage: 40 MG (40 MG), ORAL
     Route: 048

REACTIONS (2)
  - BLOOD CREATINE PHOSPHOKINASE INCREASED [None]
  - MYOSITIS [None]
